FAERS Safety Report 6637668-5 (Version None)
Quarter: 2010Q1

REPORT INFORMATION
  Report Type: 
  Country: None (occurrence: None)
  Receive Date: 20100317
  Receipt Date: 20100303
  Transmission Date: 20100710
  Serious: Yes (Hospitalization, Other)
  Sender: FDA-Public Use
  Company Number: CH-TYCO HEALTHCARE/MALLINCKRODT-T201000740

PATIENT
  Age: 64 Year
  Sex: Male

DRUGS (3)
  1. FENTANYL [Suspect]
     Indication: PAIN
     Dosage: 75 MCG/HR
     Route: 062
     Dates: start: 20050401
  2. MORPHINE [Suspect]
     Indication: PAIN
     Dosage: 100 MG, BID
  3. MORPHINE [Suspect]
     Dosage: 40 MG, BID

REACTIONS (9)
  - ASTHENIA [None]
  - CONSTIPATION [None]
  - FATIGUE [None]
  - HAEMORRHAGIC DISORDER [None]
  - HYPOTENSION [None]
  - LIBIDO DECREASED [None]
  - OVERDOSE [None]
  - SECONDARY ADRENOCORTICAL INSUFFICIENCY [None]
  - SEXUAL DYSFUNCTION [None]
